FAERS Safety Report 4909439-9 (Version None)
Quarter: 2006Q1

REPORT INFORMATION
  Report Type: 
  Country: None (occurrence: None)
  Receive Date: 20060213
  Receipt Date: 20050107
  Transmission Date: 20060701
  Serious: Yes (Hospitalization)
  Sender: FDA-Public Use
  Company Number: US-MERCK-0501USA02376

PATIENT
  Age: 36 Year
  Sex: Female
  Weight: 109 kg

DRUGS (2)
  1. VIOXX [Suspect]
     Indication: SHOULDER PAIN
     Route: 048
     Dates: start: 20000623, end: 20010202
  2. VIOXX [Suspect]
     Route: 048
     Dates: start: 20001229, end: 20010202

REACTIONS (20)
  - ANXIETY [None]
  - CHEST PAIN [None]
  - COUGH [None]
  - DEEP VEIN THROMBOSIS [None]
  - DEPRESSION [None]
  - DYSPNOEA [None]
  - EAR PAIN [None]
  - EXOSTOSIS [None]
  - FACTOR V LEIDEN MUTATION [None]
  - FALL [None]
  - HEADACHE [None]
  - LIGAMENT INJURY [None]
  - NASAL DISCOMFORT [None]
  - PAIN IN EXTREMITY [None]
  - PHARYNGOLARYNGEAL PAIN [None]
  - POST THROMBOTIC SYNDROME [None]
  - REFLUX OESOPHAGITIS [None]
  - SPINAL COLUMN STENOSIS [None]
  - VIRAL INFECTION [None]
  - WEIGHT INCREASED [None]
